FAERS Safety Report 20547333 (Version 1)
Quarter: 2022Q1

REPORT INFORMATION
  Report Type: Spontaneous
  Country: US (occurrence: US)
  Receive Date: 20220303
  Receipt Date: 20220303
  Transmission Date: 20220423
  Serious: Yes (Hospitalization)
  Sender: FDA-Public Use
  Company Number: US-SAREPTA THERAPEUTICS INC.-SRP2022-002077

PATIENT
  Sex: Male

DRUGS (1)
  1. EXONDYS 51 [Suspect]
     Active Substance: ETEPLIRSEN
     Indication: Product used for unknown indication
     Dosage: 1600 MILLIGRAM, WEEKLY
     Route: 042
     Dates: start: 20170327, end: 20220120

REACTIONS (5)
  - Pneumothorax [Unknown]
  - Nephrolithiasis [Unknown]
  - Feeding disorder [Unknown]
  - Hypotension [Unknown]
  - Product dose omission issue [Unknown]

NARRATIVE: CASE EVENT DATE: 20220101
